FAERS Safety Report 22529103 (Version 2)
Quarter: 2023Q2

REPORT INFORMATION
  Report Type: Spontaneous
  Country: US (occurrence: US)
  Receive Date: 20230607
  Receipt Date: 20230613
  Transmission Date: 20230721
  Serious: Yes (Hospitalization, Other)
  Sender: FDA-Public Use
  Company Number: US-ABBVIE-5277927

PATIENT
  Sex: Female

DRUGS (2)
  1. DEPAKOTE [Suspect]
     Active Substance: DIVALPROEX SODIUM
     Indication: Mania
     Dosage: UNKNOWN
     Route: 048
  2. DEPAKOTE [Suspect]
     Active Substance: DIVALPROEX SODIUM
     Indication: Mania
     Route: 048

REACTIONS (4)
  - Dialysis [Not Recovered/Not Resolved]
  - Seizure [Recovered/Resolved]
  - Ovarian cancer [Not Recovered/Not Resolved]
  - Unresponsive to stimuli [Not Recovered/Not Resolved]

NARRATIVE: CASE EVENT DATE: 20210101
